FAERS Safety Report 9305328 (Version 2)
Quarter: 2013Q3

REPORT INFORMATION
  Report Type: Report from Study
  Country: FR (occurrence: FR)
  Receive Date: 20130523
  Receipt Date: 20130827
  Transmission Date: 20140515
  Serious: Yes (Death, Other)
  Sender: FDA-Public Use
  Company Number: FR-ASTELLAS-2013US005337

PATIENT
  Sex: Male

DRUGS (13)
  1. ERLOTINIB TABLET [Suspect]
     Indication: LUNG NEOPLASM MALIGNANT
     Dosage: 150 MG, UNKNOWN/D
     Route: 048
     Dates: start: 20100114
  2. AMLOR [Concomitant]
     Indication: PRODUCT USED FOR UNKNOWN INDICATION
     Dosage: 10 MG, UNKNOWN/D
     Route: 065
  3. LANZOR [Concomitant]
     Indication: GASTROOESOPHAGEAL REFLUX DISEASE
     Dosage: UNK
     Route: 065
  4. LASILIX                            /00032601/ [Concomitant]
     Indication: PRODUCT USED FOR UNKNOWN INDICATION
     Dosage: UNK
     Route: 065
  5. FORLAX                             /00754501/ [Concomitant]
     Indication: CONSTIPATION
     Dosage: UNK
     Route: 065
  6. TENORMINE [Concomitant]
     Indication: PRODUCT USED FOR UNKNOWN INDICATION
     Dosage: UNK
     Route: 065
  7. OMEPRAZOL                          /00661201/ [Concomitant]
     Indication: GASTRODUODENAL ULCER
     Dosage: UNK
     Route: 065
  8. ROCALTROL [Concomitant]
     Indication: PRODUCT USED FOR UNKNOWN INDICATION
     Dosage: UNK
     Route: 065
  9. GAVISCON                           /00237601/ [Concomitant]
     Indication: GASTRODUODENAL ULCER
     Dosage: UNK
     Route: 065
  10. EMLA                               /00675501/ [Concomitant]
     Indication: PAIN
     Dosage: UNK
     Route: 065
  11. KAYEXALATE [Concomitant]
     Indication: HYPERKALAEMIA
     Dosage: UNK
     Route: 065
  12. LEXOMIL [Concomitant]
     Indication: ANXIETY
     Dosage: UNK
     Route: 065
  13. PLAVIX [Concomitant]
     Indication: PRODUCT USED FOR UNKNOWN INDICATION
     Dosage: UNK
     Route: 065

REACTIONS (3)
  - Malignant neoplasm progression [Fatal]
  - Fall [Unknown]
  - Spinal column injury [Not Recovered/Not Resolved]
